FAERS Safety Report 16190461 (Version 2)
Quarter: 2019Q2

REPORT INFORMATION
  Report Type: Spontaneous
  Country: US (occurrence: US)
  Receive Date: 20190412
  Receipt Date: 20190508
  Transmission Date: 20190711
  Serious: No
  Sender: FDA-Public Use
  Company Number: US-PFIZER INC-2019125467

PATIENT
  Age: 3 Year
  Sex: Female
  Weight: 11.79 kg

DRUGS (1)
  1. GENOTROPIN [Suspect]
     Active Substance: SOMATROPIN
     Indication: DYSCHONDROSTEOSIS
     Dosage: 0.3 MG, 1X/DAY
     Dates: start: 20190305

REACTIONS (3)
  - Wrong technique in device usage process [Unknown]
  - Gastric disorder [Recovered/Resolved]
  - Product use in unapproved indication [Unknown]

NARRATIVE: CASE EVENT DATE: 20190305
